FAERS Safety Report 10171824 (Version 1)
Quarter: 2014Q2

REPORT INFORMATION
  Report Type: Spontaneous
  Country: US (occurrence: None)
  Receive Date: 20140514
  Receipt Date: 20140514
  Transmission Date: 20141212
  Serious: Yes (Hospitalization)
  Sender: FDA-Public Use
  Company Number: None

PATIENT
  Age: 87 Year
  Sex: Male
  Weight: 104 kg

DRUGS (15)
  1. VANCOMYCIN [Suspect]
     Indication: STAPHYLOCOCCAL BACTERAEMIA
     Route: 042
     Dates: start: 20140410, end: 20140504
  2. LASIX [Concomitant]
  3. HYDRALAZINE [Concomitant]
  4. HYDROCORTISON OINTMENT [Concomitant]
  5. FLUCONAZOLE [Concomitant]
  6. TOPROL [Concomitant]
  7. AVELOX [Concomitant]
  8. AMBIEN [Concomitant]
  9. POTASSIUM CL [Concomitant]
  10. RIFAMPIN [Concomitant]
  11. PROTONIX [Concomitant]
  12. HEPARIN [Concomitant]
  13. DUONEB [Concomitant]
  14. MAGOX [Concomitant]
  15. LIPITOR [Concomitant]

REACTIONS (5)
  - Rash [None]
  - Product compounding quality issue [None]
  - Drug level increased [None]
  - Product formulation issue [None]
  - Product substitution issue [None]
